FAERS Safety Report 25644829 (Version 1)
Quarter: 2025Q3

REPORT INFORMATION
  Report Type: Spontaneous
  Country: US (occurrence: None)
  Receive Date: 20250804
  Receipt Date: 20250804
  Transmission Date: 20251021
  Serious: Yes (Death)
  Sender: FDA-CTU
  Company Number: None

PATIENT
  Age: 19 Year
  Sex: Male

DRUGS (1)
  1. CABOMETYX [Suspect]
     Active Substance: CABOZANTINIB S-MALATE
     Indication: Hepatic cancer
     Dosage: FREQUENCY : DAILY;?
     Route: 048
     Dates: start: 20240429, end: 20250804

REACTIONS (2)
  - Condition aggravated [None]
  - Hepatic cancer [None]

NARRATIVE: CASE EVENT DATE: 20250804
